FAERS Safety Report 4859022-9 (Version None)
Quarter: 2005Q4

REPORT INFORMATION
  Report Type: 
  Country: None (occurrence: None)
  Receive Date: 20051219
  Receipt Date: 20050907
  Transmission Date: 20060501
  Serious: No
  Sender: FDA-Public Use
  Company Number: US-GLAXOSMITHKLINE-A0573241A

PATIENT
  Age: 73 Year
  Sex: Female

DRUGS (6)
  1. NICODERM CQ [Suspect]
     Dates: start: 20050902
  2. FUROSEMIDE [Concomitant]
     Indication: BLOOD PRESSURE
  3. ASPIRIN [Concomitant]
  4. MONOPRIL [Concomitant]
  5. ACIPHEX [Concomitant]
  6. ZOCOR [Concomitant]

REACTIONS (6)
  - ANOREXIA [None]
  - BACK PAIN [None]
  - CONSTIPATION [None]
  - HYPERHIDROSIS [None]
  - NAUSEA [None]
  - TREMOR [None]
